FAERS Safety Report 9085290 (Version 1)
Quarter: 2013Q1

REPORT INFORMATION
  Report Type: Spontaneous
  Country: US (occurrence: US)
  Receive Date: 20130130
  Receipt Date: 20130130
  Transmission Date: 20140127
  Serious: No
  Sender: FDA-Public Use
  Company Number: US-ABBOTT-12P-163-0978151-00

PATIENT
  Sex: Female
  Weight: 12.7 kg

DRUGS (7)
  1. HUMIRA [Suspect]
     Indication: IRIDOCYCLITIS
     Dates: start: 201207
  2. HUMIRA [Suspect]
     Indication: JUVENILE IDIOPATHIC ARTHRITIS
  3. NAPROXEN [Concomitant]
     Indication: JUVENILE IDIOPATHIC ARTHRITIS
  4. PRED FORTE EYE DROPS [Concomitant]
     Indication: UVEITIS
  5. OMEGA 3 [Concomitant]
     Indication: PRODUCT USED FOR UNKNOWN INDICATION
  6. MIRALAX [Concomitant]
     Indication: CONSTIPATION
  7. PROBIOTICS [Concomitant]
     Indication: PRODUCT USED FOR UNKNOWN INDICATION

REACTIONS (5)
  - Off label use [Not Recovered/Not Resolved]
  - Off label use [Not Recovered/Not Resolved]
  - Wrong technique in drug usage process [Unknown]
  - Needle issue [Unknown]
  - Incorrect dose administered [Unknown]
